FAERS Safety Report 7552152-2 (Version None)
Quarter: 2011Q2

REPORT INFORMATION
  Report Type: 
  Country: None (occurrence: None)
  Receive Date: 20110616
  Receipt Date: 20011113
  Transmission Date: 20111010
  Serious: Yes (Hospitalization)
  Sender: FDA-Public Use
  Company Number: PHBS2001AR10921

PATIENT
  Sex: Female
  Weight: 43 kg

DRUGS (6)
  1. CLONAZEPAM [Concomitant]
     Dosage: 2 MG/DAY
     Route: 065
  2. CIPROVIT CALCICO [Concomitant]
     Dosage: 1 DF/DAY
     Route: 048
  3. MOTILIUM ^JANSSEN^ [Concomitant]
     Dosage: 2 DF/DAY
     Route: 048
  4. DIPHENHYDRAMINE HCL [Concomitant]
     Dosage: 2 DF/DAY
     Route: 048
  5. CLOZAPINE [Suspect]
     Indication: SCHIZOPHRENIA
     Dosage: 450 MG/DAY
     Route: 048
     Dates: start: 20010801, end: 20011026
  6. SUPRADYN [Concomitant]
     Dosage: 1 DF/DAY
     Route: 048

REACTIONS (8)
  - PNEUMONIA [None]
  - AGRANULOCYTOSIS [None]
  - PYREXIA [None]
  - LYMPHADENOPATHY [None]
  - PLATELET COUNT INCREASED [None]
  - ANAEMIA [None]
  - HAEMATOCRIT DECREASED [None]
  - ACUTE LYMPHOCYTIC LEUKAEMIA [None]
